FAERS Safety Report 8556396-2 (Version None)
Quarter: 2012Q3

REPORT INFORMATION
  Report Type: 
  Country: None (occurrence: None)
  Receive Date: 20120801
  Receipt Date: 20120725
  Transmission Date: 20120928
  Serious: Yes (Death)
  Sender: FDA-Public Use
  Company Number: PHEH2012US012279

PATIENT
  Sex: Female

DRUGS (4)
  1. LASIX [Concomitant]
  2. POTASSIUM [Concomitant]
  3. IRON [Concomitant]
  4. EXELON [Suspect]
     Route: 062

REACTIONS (1)
  - DEATH [None]
